FAERS Safety Report 8713746 (Version 2)
Quarter: 2012Q4

REPORT INFORMATION
  Report Type: 
  Country: IT (occurrence: IT)
  Receive Date: 20120808
  Receipt Date: 20121001
  Transmission Date: 20130627
  Serious: Yes (Hospitalization)
  Sender: FDA-Public Use
  Company Number: IT-CELGENEUS-083-20785-12073014

PATIENT
  Age: 66 Year
  Sex: Male

DRUGS (4)
  1. THALIDOMIDE [Suspect]
     Indication: MULTIPLE MYELOMA
     Route: 048
     Dates: start: 20111014, end: 20120510
  2. LAMIVUDINE [Concomitant]
     Indication: DRUG USE FOR UNKNOWN INDICATION
     Dosage: 100 Milligram
     Route: 048
  3. BACTRIM [Concomitant]
     Indication: DRUG USE FOR UNKNOWN INDICATION
     Dosage: 160mg+800mg
     Route: 048
  4. CARDIOASPIRIN [Concomitant]
     Indication: DRUG USE FOR UNKNOWN INDICATION
     Dosage: 100 Milligram
     Route: 048

REACTIONS (3)
  - Pancreatitis acute [Recovered/Resolved]
  - Cholecystitis acute [Recovered/Resolved]
  - Cholelithiasis [Recovered/Resolved]
